FAERS Safety Report 9097017 (Version 5)
Quarter: 2014Q1

REPORT INFORMATION
  Report Type: Spontaneous
  Country: US (occurrence: None)
  Receive Date: 20130124
  Receipt Date: 20140314
  Transmission Date: 20141002
  Serious: Yes (Hospitalization)
  Sender: FDA-Public Use
  Company Number: AUR-APL-2013-00836

PATIENT
  Age: 80 Year
  Sex: Male
  Weight: 104.4 kg

DRUGS (12)
  1. BENAZEPRIL [Suspect]
     Indication: HYPERTENSION
     Dosage: 1 IN 1 D
     Route: 048
     Dates: start: 20120224, end: 20120831
  2. CARVEDILOL (CARVEDILOL) [Suspect]
     Indication: CARDIAC FAILURE CONGESTIVE
     Dosage: 1 IN 1 D
     Route: 048
     Dates: start: 20120414, end: 20120831
  3. MAG-OX (MAGNESIUM OXIDE) [Concomitant]
  4. METOLAZONE (METOLAZONE) [Concomitant]
  5. NEXIUM (ESOMEPRAZOLE MAGNESIUM) [Concomitant]
  6. ALLOPURINOL [Concomitant]
  7. POTASSIUM (POTASSIUM) [Concomitant]
  8. ROPINIROLE (ROPINIROLE) [Concomitant]
  9. ACETYLSALICYLIC ACID (ACETYLSALICYLIC ACID) [Concomitant]
  10. FUROSEMIDE (FUROSEMIDE) [Concomitant]
  11. PRILOSEC [Concomitant]
  12. REQUIP (ROPINIROLE HYDROCHLORIDE) [Concomitant]

REACTIONS (22)
  - Malaise [None]
  - Loss of consciousness [None]
  - Bradycardia [None]
  - Urinary tract infection [None]
  - Hypotension [None]
  - Chest pain [None]
  - Cardiac failure congestive [None]
  - Blood bicarbonate increased [None]
  - Blood glucose increased [None]
  - Prothrombin time prolonged [None]
  - International normalised ratio increased [None]
  - Anion gap decreased [None]
  - Blood urea increased [None]
  - Blood creatinine increased [None]
  - Albumin globulin ratio decreased [None]
  - Blood bilirubin increased [None]
  - Blood alkaline phosphatase increased [None]
  - Glomerular filtration rate decreased [None]
  - Mean cell volume increased [None]
  - Mean cell haemoglobin increased [None]
  - Platelet count decreased [None]
  - Lymphocyte percentage decreased [None]
